FAERS Safety Report 7632969-6 (Version None)
Quarter: 2011Q3

REPORT INFORMATION
  Report Type: 
  Country: None (occurrence: None)
  Receive Date: 20110725
  Receipt Date: 20110713
  Transmission Date: 20111222
  Serious: Yes (Other)
  Sender: FDA-Public Use
  Company Number: US-ROCHE-752053

PATIENT
  Sex: Male
  Weight: 81.6 kg

DRUGS (1)
  1. ACCUTANE [Suspect]
     Indication: ACNE
     Route: 065
     Dates: start: 19820701, end: 19850101

REACTIONS (8)
  - INFLAMMATORY BOWEL DISEASE [None]
  - ARTHRALGIA [None]
  - INTESTINAL HAEMORRHAGE [None]
  - CROHN'S DISEASE [None]
  - DEPRESSION [None]
  - FISTULA [None]
  - HAEMORRHOIDS [None]
  - GASTROINTESTINAL INJURY [None]
